FAERS Safety Report 17571259 (Version 2)
Quarter: 2020Q2

REPORT INFORMATION
  Report Type: Spontaneous
  Country: US (occurrence: US)
  Receive Date: 20200323
  Receipt Date: 20200520
  Transmission Date: 20200713
  Serious: Yes (Other)
  Sender: FDA-Public Use
  Company Number: US-JNJFOC-20200322289

PATIENT
  Age: 31 Year
  Sex: Male
  Weight: 99.88 kg

DRUGS (7)
  1. RISPERDAL CONSTA [Suspect]
     Active Substance: RISPERIDONE
     Indication: MANIA
     Route: 042
     Dates: start: 20190329
  2. LITHIUM. [Concomitant]
     Active Substance: LITHIUM
     Indication: PRODUCT USED FOR UNKNOWN INDICATION
     Route: 065
  3. RISPERDAL CONSTA [Suspect]
     Active Substance: RISPERIDONE
  4. RISPERDAL [Suspect]
     Active Substance: RISPERIDONE
     Indication: MANIA
     Route: 048
     Dates: start: 20190329
  5. RISPERDAL CONSTA [Suspect]
     Active Substance: RISPERIDONE
  6. RISPERDAL CONSTA [Suspect]
     Active Substance: RISPERIDONE
  7. GEODON [Concomitant]
     Active Substance: ZIPRASIDONE HYDROCHLORIDE\ZIPRASIDONE MESYLATE
     Indication: BIPOLAR DISORDER
     Route: 065
     Dates: start: 2004

REACTIONS (7)
  - Insomnia [Unknown]
  - Abnormal weight gain [Not Recovered/Not Resolved]
  - Abnormal behaviour [Unknown]
  - Mental disorder [Unknown]
  - Loss of consciousness [Unknown]
  - Off label use [Unknown]
  - Incorrect route of product administration [Unknown]

NARRATIVE: CASE EVENT DATE: 20190329
